FAERS Safety Report 10014276 (Version 1)
Quarter: 2014Q1

REPORT INFORMATION
  Report Type: Spontaneous
  Country: US (occurrence: US)
  Receive Date: 20140317
  Receipt Date: 20140317
  Transmission Date: 20141002
  Serious: No
  Sender: FDA-Public Use
  Company Number: US-BIOGENIDEC-2014BI020381

PATIENT
  Age: 57 Year
  Sex: Female

DRUGS (10)
  1. TECFIDERA [Suspect]
     Indication: MULTIPLE SCLEROSIS
     Route: 048
     Dates: start: 20140117
  2. TECFIDERA [Suspect]
     Indication: MULTIPLE SCLEROSIS
     Dates: start: 20140211
  3. GABAPENTIN [Concomitant]
  4. PROKARIN PATCH [Concomitant]
  5. VITAMIN D,B COMPLEX [Concomitant]
  6. KLONOPIN [Concomitant]
  7. ZINC [Concomitant]
  8. CALCIUM MAGNESIUM [Concomitant]
  9. FISH OIL [Concomitant]
  10. GARLIC CAPSULES [Concomitant]

REACTIONS (6)
  - Flatulence [Not Recovered/Not Resolved]
  - Abdominal distension [Not Recovered/Not Resolved]
  - Balance disorder [Not Recovered/Not Resolved]
  - Gait disturbance [Not Recovered/Not Resolved]
  - Memory impairment [Not Recovered/Not Resolved]
  - Prescribed underdose [Not Recovered/Not Resolved]
